FAERS Safety Report 14069245 (Version 1)
Quarter: 2017Q4

REPORT INFORMATION
  Report Type: Spontaneous
  Country: JP (occurrence: JP)
  Receive Date: 20171010
  Receipt Date: 20171010
  Transmission Date: 20180321
  Serious: Yes (Other)
  Sender: FDA-Public Use
  Company Number: JP-VIIV HEALTHCARE LIMITED-JP2017JPN152526

PATIENT
  Age: 5 Decade
  Sex: Male

DRUGS (2)
  1. STOCRIN [Suspect]
     Active Substance: EFAVIRENZ
     Indication: HIV INFECTION
     Dosage: UNK
     Route: 048
  2. COMBIVIR [Suspect]
     Active Substance: LAMIVUDINE\ZIDOVUDINE
     Indication: HIV INFECTION
     Dosage: UNK
     Route: 048

REACTIONS (8)
  - Abnormal dreams [Recovered/Resolved]
  - Dizziness [Recovering/Resolving]
  - Sleep disorder [Recovered/Resolved]
  - Nausea [Recovering/Resolving]
  - Hypoaesthesia [Recovered/Resolved]
  - Rash [Recovering/Resolving]
  - Diarrhoea [Recovering/Resolving]
  - Depressed level of consciousness [Recovered/Resolved]
